FAERS Safety Report 8064766-4 (Version None)
Quarter: 2012Q1

REPORT INFORMATION
  Report Type: 
  Country: None (occurrence: None)
  Receive Date: 20120124
  Receipt Date: 20120116
  Transmission Date: 20120608
  Serious: Yes (Hospitalization)
  Sender: FDA-Public Use
  Company Number: BE-BRISTOL-MYERS SQUIBB COMPANY-16350878

PATIENT
  Age: 55 Year
  Sex: Female

DRUGS (3)
  1. GLUCOPHAGE [Concomitant]
  2. EFFEXOR [Concomitant]
  3. ABILIFY [Suspect]

REACTIONS (2)
  - RENAL FAILURE [None]
  - OVERDOSE [None]
